FAERS Safety Report 7611080-4 (Version None)
Quarter: 2011Q3

REPORT INFORMATION
  Report Type: 
  Country: None (occurrence: None)
  Receive Date: 20110715
  Receipt Date: 20110713
  Transmission Date: 20111222
  Serious: Yes (Other)
  Sender: FDA-Public Use
  Company Number: US-PFIZER INC-2010137961

PATIENT
  Sex: Female

DRUGS (7)
  1. CELEBREX [Concomitant]
     Indication: ANXIETY
  2. KLONOPIN [Concomitant]
     Indication: ANXIETY
  3. KLONOPIN [Concomitant]
     Indication: PARANOIA
  4. CELEBREX [Concomitant]
     Indication: DEPRESSION
     Dosage: UNK
     Dates: start: 19970101
  5. CHANTIX [Suspect]
     Indication: SMOKING CESSATION THERAPY
     Dosage: 1 MG,
     Dates: start: 20080416, end: 20090506
  6. KLONOPIN [Concomitant]
     Indication: DEPRESSION
     Dosage: UNK
     Dates: start: 19970101
  7. CELEBREX [Concomitant]
     Indication: PARANOIA

REACTIONS (8)
  - MENTAL DISORDER [None]
  - ABNORMAL BEHAVIOUR [None]
  - PARANOIA [None]
  - AGGRESSION [None]
  - DEPRESSION [None]
  - SUICIDE ATTEMPT [None]
  - EMOTIONAL DISTRESS [None]
  - ANXIETY [None]
